FAERS Safety Report 26123383 (Version 1)
Quarter: 2025Q4

REPORT INFORMATION
  Report Type: Report from Study
  Country: AU (occurrence: AU)
  Receive Date: 20251204
  Receipt Date: 20251204
  Transmission Date: 20260117
  Serious: Yes (Other)
  Sender: ABBVIE
  Company Number: AU-ABBVIE-6570670

PATIENT
  Age: 85 Year
  Sex: Female

DRUGS (16)
  1. CARBIDOPA\LEVODOPA [Suspect]
     Active Substance: CARBIDOPA\LEVODOPA
     Indication: Parkinson^s disease
     Dosage: DOSE:7.5ML/HR, 4.6ML/HR, EXTRA DOSE 5.3ML
     Route: 050
     Dates: start: 20200529
  2. CARBIDOPA\LEVODOPA [Suspect]
     Active Substance: CARBIDOPA\LEVODOPA
     Dosage: EXTRA DOSE PROVIDED AT 06:00 WITH THE DISPERSIBLE LEVODOPA 100MG
     Route: 050
  3. AMANTADINE [Concomitant]
     Active Substance: AMANTADINE
     Indication: Product used for unknown indication
  4. OXYBUTYNIN [Suspect]
     Active Substance: OXYBUTYNIN
     Indication: Product used for unknown indication
     Route: 065
  5. VITAMIN D [Concomitant]
     Active Substance: VITAMIN D NOS
     Indication: Product used for unknown indication
  6. BENSERAZIDE HYDROCHLORIDE\LEVODOPA [Concomitant]
     Active Substance: BENSERAZIDE HYDROCHLORIDE\LEVODOPA
     Indication: Product used for unknown indication
     Dosage: 100/25MG
  7. PRAMIPEXOLE [Concomitant]
     Active Substance: PRAMIPEXOLE
     Indication: Product used for unknown indication
  8. PYRIDOSTIGMINE [Concomitant]
     Active Substance: PYRIDOSTIGMINE
     Indication: Product used for unknown indication
  9. PYRIDOXINE [Concomitant]
     Active Substance: PYRIDOXINE
     Indication: Product used for unknown indication
  10. POLYETHYLENE GLYCOLS [Concomitant]
     Active Substance: POLYETHYLENE GLYCOLS
     Indication: Product used for unknown indication
     Dosage: 1 SACHET NOCTE
  11. VITAMIN B12 [Concomitant]
     Active Substance: CYANOCOBALAMIN
     Indication: Product used for unknown indication
  12. Denu (Denosumab) [Concomitant]
     Indication: Product used for unknown indication
  13. RABEPRAZOLE [Concomitant]
     Active Substance: RABEPRAZOLE
     Indication: Product used for unknown indication
  14. Pregabalin zn (Pregabalin) [Concomitant]
     Indication: Product used for unknown indication
  15. Paracetamol A (Paracetamol) [Concomitant]
     Indication: Product used for unknown indication
  16. Mirtazapine A (Mirtazapine) [Concomitant]
     Indication: Product used for unknown indication

REACTIONS (17)
  - Blindness [Unknown]
  - Abdominal pain lower [Recovered/Resolved]
  - Device dislocation [Unknown]
  - Scar [Unknown]
  - Suprapubic pain [Not Recovered/Not Resolved]
  - Urinary incontinence [Unknown]
  - Device issue [Unknown]
  - Dyskinesia [Unknown]
  - Movement disorder [Recovering/Resolving]
  - Hallucination, visual [Recovering/Resolving]
  - Dementia [Unknown]
  - Anticholinergic effect [Unknown]
  - Delusion [Recovering/Resolving]
  - Vitamin D decreased [Unknown]
  - Faeces soft [Unknown]
  - On and off phenomenon [Recovering/Resolving]
  - Angle closure glaucoma [Unknown]
